FAERS Safety Report 14249752 (Version 1)
Quarter: 2017Q4

REPORT INFORMATION
  Report Type: Spontaneous
  Country: US (occurrence: US)
  Receive Date: 20171204
  Receipt Date: 20171204
  Transmission Date: 20180321
  Serious: No
  Sender: FDA-Public Use
  Company Number: None

PATIENT
  Age: 53 Year
  Sex: Female
  Weight: 63 kg

DRUGS (3)
  1. XARELTO [Concomitant]
     Active Substance: RIVAROXABAN
  2. DULOXETINE. [Suspect]
     Active Substance: DULOXETINE
     Indication: MYALGIA
     Dosage: ?          QUANTITY:2 CAPSULE(S);?
     Route: 048
  3. DULOXETINE. [Suspect]
     Active Substance: DULOXETINE
     Indication: NEURALGIA
     Dosage: ?          QUANTITY:2 CAPSULE(S);?
     Route: 048

REACTIONS (8)
  - Muscle twitching [None]
  - Hot flush [None]
  - Therapy cessation [None]
  - Night sweats [None]
  - Paraesthesia [None]
  - Unevaluable event [None]
  - Muscle disorder [None]
  - Drug effect decreased [None]

NARRATIVE: CASE EVENT DATE: 20170901
